FAERS Safety Report 4622104-0 (Version None)
Quarter: 2005Q1

REPORT INFORMATION
  Report Type: 
  Country: None (occurrence: None)
  Receive Date: 20050329
  Receipt Date: 20050316
  Transmission Date: 20050727
  Serious: Yes (Hospitalization)
  Sender: FDA-Public Use
  Company Number: 2005046629

PATIENT
  Sex: Female
  Weight: 76.2043 kg

DRUGS (7)
  1. NICOTROL [Suspect]
     Indication: SMOKING CESSATION THERAPY
     Dosage: 6 CARTRIDGES QD, INHALATION
     Route: 055
     Dates: start: 20050305, end: 20050313
  2. SALBUTAMOL SULFATE (SALBUTAMOL SULFATE) [Concomitant]
  3. IPRATROPIUM BROMIDE [Concomitant]
  4. FLUTICASONE PROPIONATE [Concomitant]
  5. SERETIDE MITE (FLUTICASONE PROPIONATE, SALMETEROL XINAFOATE) [Concomitant]
  6. VICODIN [Concomitant]
  7. CYCLOBENZAPRINE HYDROCHLORIDE [Concomitant]

REACTIONS (2)
  - GASTRIC DISORDER [None]
  - PNEUMONIA [None]
